FAERS Safety Report 22138223 (Version 2)
Quarter: 2023Q1

REPORT INFORMATION
  Report Type: Spontaneous
  Country: FR (occurrence: FR)
  Receive Date: 20230325
  Receipt Date: 20230330
  Transmission Date: 20230417
  Serious: Yes (Death, Other)
  Sender: FDA-Public Use
  Company Number: FR-AMGEN-FRASP2023051903

PATIENT

DRUGS (1)
  1. LUMAKRAS [Suspect]
     Active Substance: SOTORASIB
     Indication: Product used for unknown indication
     Dosage: UNK
     Route: 065
     Dates: end: 20220223

REACTIONS (1)
  - Disease progression [Fatal]
